FAERS Safety Report 4432581-6 (Version None)
Quarter: 2004Q3

REPORT INFORMATION
  Report Type: 
  Country: None (occurrence: None)
  Receive Date: 20040820
  Receipt Date: 20040812
  Transmission Date: 20050211
  Serious: No
  Sender: FDA-Public Use
  Company Number: BDI-006389

PATIENT
  Age: 58 Year
  Sex: Male

DRUGS (2)
  1. RENOGRAFIN-60 [Suspect]
     Indication: COMPUTERISED TOMOGRAM
     Dosage: 120 ML ONCE IV
     Route: 042
     Dates: start: 20040630, end: 20040630
  2. RENOGRAFIN-60 [Suspect]
     Indication: PANCREATIC CARCINOMA
     Dosage: 120 ML ONCE IV
     Route: 042
     Dates: start: 20040630, end: 20040630

REACTIONS (3)
  - CONVULSION [None]
  - FEELING HOT [None]
  - PROCEDURAL COMPLICATION [None]
